FAERS Safety Report 5134475-X (Version None)
Quarter: 2006Q4

REPORT INFORMATION
  Report Type: 
  Country: None (occurrence: None)
  Receive Date: 20061025
  Receipt Date: 20060921
  Transmission Date: 20070319
  Serious: Yes (Death, Other)
  Sender: FDA-Public Use
  Company Number: PHHO2006SE15772

PATIENT
  Age: 60 Year
  Sex: Male
  Weight: 88.2 kg

DRUGS (9)
  1. LOTREL [Suspect]
     Indication: HYPERTENSION
     Dosage: LEVEL 1
     Route: 048
     Dates: start: 20050204
  2. LOTREL [Suspect]
     Dosage: UNK, LEVEL 3
     Route: 048
  3. TEGRETOL [Suspect]
     Indication: INCORRECT DOSE ADMINISTERED
     Dosage: 3 X 200 MG
     Route: 048
  4. REMERON [Concomitant]
  5. METOPROLOL SUCCINATE [Concomitant]
  6. LIPITOR [Concomitant]
  7. OMEPRAZOLE [Concomitant]
  8. PLAVIX [Concomitant]
  9. NITROMEX [Concomitant]

REACTIONS (4)
  - COMPLETED SUICIDE [None]
  - DEPRESSION [None]
  - DRUG TOXICITY [None]
  - INTENTIONAL OVERDOSE [None]
